FAERS Safety Report 13342336 (Version 4)
Quarter: 2017Q2

REPORT INFORMATION
  Report Type: Spontaneous
  Country: US (occurrence: US)
  Receive Date: 20170316
  Receipt Date: 20170427
  Transmission Date: 20170830
  Serious: Yes (Life-Threatening, Hospitalization)
  Sender: FDA-Public Use
  Company Number: US-UNITED THERAPEUTICS-UNT-2017-002810

PATIENT
  Age: 71 Year
  Sex: Female
  Weight: 70.75 kg

DRUGS (2)
  1. SILDENAFIL CITRATE. [Concomitant]
     Active Substance: SILDENAFIL CITRATE
     Indication: PRODUCT USED FOR UNKNOWN INDICATION
  2. REMODULIN [Suspect]
     Active Substance: TREPROSTINIL
     Indication: PULMONARY ARTERIAL HYPERTENSION
     Dosage: 0.091 ?G/KG, CONTINUING
     Route: 041
     Dates: start: 20120827

REACTIONS (7)
  - Respiratory failure [Unknown]
  - Central venous catheterisation [Unknown]
  - Device occlusion [Unknown]
  - Device related infection [Unknown]
  - Viraemia [Unknown]
  - Sedative therapy [Unknown]
  - Influenza [Unknown]

NARRATIVE: CASE EVENT DATE: 20170224
